FAERS Safety Report 11399801 (Version 3)
Quarter: 2015Q4

REPORT INFORMATION
  Report Type: Spontaneous
  Country: CA (occurrence: CA)
  Receive Date: 20150820
  Receipt Date: 20151112
  Transmission Date: 20160304
  Serious: Yes (Other)
  Sender: FDA-Public Use
  Company Number: CA-GLAXOSMITHKLINE-CA2015118927

PATIENT
  Age: 39 Year
  Sex: Female

DRUGS (4)
  1. ADVIL [Concomitant]
     Active Substance: IBUPROFEN
     Indication: MIGRAINE
     Route: 065
  2. NICORETTE [Suspect]
     Active Substance: NICOTINE
     Dosage: UNK
     Route: 048
     Dates: start: 20141009, end: 20151009
  3. NICORETTE [Suspect]
     Active Substance: NICOTINE
     Indication: SMOKING CESSATION THERAPY
     Dosage: 2 MG, UNK
     Route: 048
     Dates: start: 20141008
  4. NICODERM CQ [Suspect]
     Active Substance: NICOTINE
     Indication: SMOKING CESSATION THERAPY
     Dosage: UNK
     Route: 061
     Dates: start: 20141008

REACTIONS (3)
  - Overdose [Unknown]
  - Nicotine dependence [Not Recovered/Not Resolved]
  - Incorrect drug administration duration [Not Recovered/Not Resolved]

NARRATIVE: CASE EVENT DATE: 20141009
